FAERS Safety Report 5404214-3 (Version None)
Quarter: 2007Q3

REPORT INFORMATION
  Report Type: 
  Country: None (occurrence: None)
  Receive Date: 20070802
  Receipt Date: 20070725
  Transmission Date: 20080115
  Serious: Yes (Other)
  Sender: FDA-Public Use
  Company Number: GB-ROCHE-509255

PATIENT
  Age: 77 Year
  Sex: Female
  Weight: 82.6 kg

DRUGS (7)
  1. XENICAL [Suspect]
     Indication: OBESITY
     Route: 048
     Dates: start: 20070620, end: 20070628
  2. PIOGLITAZONE [Concomitant]
  3. SIMVASTATIN [Concomitant]
  4. VALSARTAN [Concomitant]
  5. AMLODIPINE [Concomitant]
  6. DIPYRIDAMOLE [Concomitant]
  7. ASPIRIN [Concomitant]

REACTIONS (1)
  - FEELING ABNORMAL [None]
